FAERS Safety Report 4345256-9 (Version None)
Quarter: 2004Q2

REPORT INFORMATION
  Report Type: 
  Country: None (occurrence: None)
  Receive Date: 20040422
  Receipt Date: 20040422
  Transmission Date: 20050107
  Serious: Yes (Hospitalization)
  Sender: FDA-Public Use
  Company Number: None

PATIENT
  Age: 77 Year
  Sex: Male
  Weight: 79 kg

DRUGS (2)
  1. LOVENOX [Suspect]
     Dosage: 40 MG SQ QD
     Route: 058
     Dates: start: 20040329, end: 20040422
  2. PEPCID [Suspect]
     Dosage: 20 MG IV BID
     Route: 042
     Dates: start: 20040421, end: 20040422

REACTIONS (1)
  - THROMBOCYTOPENIA [None]
